FAERS Safety Report 24378887 (Version 1)
Quarter: 2024Q3

REPORT INFORMATION
  Report Type: Spontaneous
  Country: CA (occurrence: CA)
  Receive Date: 20240930
  Receipt Date: 20240930
  Transmission Date: 20241016
  Serious: Yes (Other)
  Sender: ALKEM
  Company Number: CA-ALKEM LABORATORIES LIMITED-CA-ALKEM-2024-22131

PATIENT
  Age: 48 Year
  Sex: Female

DRUGS (2)
  1. AZATHIOPRINE [Suspect]
     Active Substance: AZATHIOPRINE
     Indication: Crohn^s disease
     Dosage: 150 MILLIGRAM, QD
     Route: 065
  2. ADALIMUMAB [Suspect]
     Active Substance: ADALIMUMAB
     Indication: Inflammation
     Dosage: UNK
     Route: 065

REACTIONS (4)
  - Epstein Barr virus positive mucocutaneous ulcer [Unknown]
  - Gastrointestinal haemorrhage [Unknown]
  - Intestinal perforation [Unknown]
  - Herpes zoster [Unknown]
